FAERS Safety Report 8850660 (Version 6)
Quarter: 2014Q2

REPORT INFORMATION
  Report Type: Spontaneous
  Country: CA (occurrence: CA)
  Receive Date: 20121019
  Receipt Date: 20140422
  Transmission Date: 20141212
  Serious: Yes (Hospitalization, Other)
  Sender: FDA-Public Use
  Company Number: CA-ROCHE-1146625

PATIENT
  Age: 65 Year
  Sex: Female

DRUGS (11)
  1. XOLAIR [Suspect]
     Indication: HYPERSENSITIVITY
     Route: 058
     Dates: start: 20120712
  2. XOLAIR [Suspect]
     Route: 058
     Dates: start: 20120816
  3. XOLAIR [Suspect]
     Route: 058
     Dates: start: 20120913
  4. XOLAIR [Suspect]
     Route: 058
     Dates: start: 20140312
  5. ALVESCO [Concomitant]
  6. SPIRIVA [Concomitant]
  7. VENTOLIN [Concomitant]
  8. SINGULAIR [Concomitant]
  9. PREDNISONE [Concomitant]
  10. SEREVENT [Concomitant]
  11. MORPHINE [Concomitant]

REACTIONS (16)
  - Hip fracture [Unknown]
  - Wound infection [Unknown]
  - Osteomyelitis [Unknown]
  - Insomnia [Unknown]
  - Vomiting [Unknown]
  - Abdominal pain [Unknown]
  - Heart rate increased [Unknown]
  - Wound [Unknown]
  - Diarrhoea [Unknown]
  - Headache [Unknown]
  - Injection site warmth [Unknown]
  - Fatigue [Unknown]
  - Pyrexia [Unknown]
  - Respiratory disorder [Unknown]
  - Localised infection [Not Recovered/Not Resolved]
  - Blood pressure decreased [Unknown]
